FAERS Safety Report 9734659 (Version 3)
Quarter: 2014Q1

REPORT INFORMATION
  Report Type: Spontaneous
  Country: JP (occurrence: JP)
  Receive Date: 20131206
  Receipt Date: 20140321
  Transmission Date: 20141002
  Serious: Yes (Hospitalization)
  Sender: FDA-Public Use
  Company Number: JP-AMGEN-JPNSP2013085077

PATIENT
  Age: 68 Year
  Sex: Male
  Weight: 76 kg

DRUGS (11)
  1. VECTIBIX [Suspect]
     Indication: COLON CANCER
     Dosage: 480 MG, Q2WK
     Route: 041
     Dates: start: 20110120, end: 20120726
  2. VECTIBIX [Suspect]
     Dosage: 380 MG, Q2WK
     Route: 041
     Dates: start: 20120816, end: 20130905
  3. IRINOTECAN HYDROCHLORIDE [Concomitant]
     Indication: COLON CANCER
     Dosage: UNK UNK, Q2WK
     Route: 041
     Dates: start: 20110120
  4. FLUOROURACIL [Concomitant]
     Indication: COLON CANCER
     Dosage: UNK UNK, Q2WK
     Route: 042
     Dates: start: 20110120
  5. CALCIUM LEVOFOLINATE [Concomitant]
     Indication: COLON CANCER
     Dosage: UNK UNK, Q2WK
     Route: 041
     Dates: start: 20110120
  6. DIOVAN [Concomitant]
     Indication: HYPERTENSION
     Dosage: 80 MG, QD
     Route: 048
     Dates: start: 20110616, end: 20131003
  7. NIFEDIPINE [Concomitant]
     Indication: HYPERTENSION
     Dosage: 20 MG, QD
     Route: 048
     Dates: start: 20120315, end: 20131003
  8. WARFARIN [Concomitant]
     Indication: THROMBOSIS PROPHYLAXIS
     Dosage: 1.5 MG, QD
     Route: 048
     Dates: start: 20130207, end: 20130703
  9. WARFARIN [Concomitant]
     Dosage: 1.5 MG, QD
     Route: 048
     Dates: start: 20130905, end: 20130925
  10. WARFARIN [Concomitant]
     Dosage: 1 MG, QD
     Route: 048
     Dates: start: 20130926, end: 20130927
  11. WARFARIN [Concomitant]
     Dosage: 2 MG, QD
     Route: 048
     Dates: start: 20130928

REACTIONS (2)
  - Pulmonary embolism [Recovered/Resolved]
  - Dermatitis acneiform [Unknown]
